FAERS Safety Report 8054957-0 (Version None)
Quarter: 2012Q1

REPORT INFORMATION
  Report Type: 
  Country: None (occurrence: None)
  Receive Date: 20120119
  Receipt Date: 20120113
  Transmission Date: 20120608
  Serious: Yes (Hospitalization, Other)
  Sender: FDA-Public Use
  Company Number: JP-CELGENEUS-087-21880-11122608

PATIENT
  Sex: Male
  Weight: 55.5 kg

DRUGS (11)
  1. ALENDRONATE SODIUM [Suspect]
     Indication: FRACTURE
     Dosage: 35 MILLIGRAM
     Route: 048
     Dates: start: 20111130, end: 20111206
  2. PELTAZON [Suspect]
     Indication: PAIN
     Dosage: 25 MILLIGRAM
     Route: 048
     Dates: start: 20111115, end: 20111206
  3. ADALAT [Concomitant]
     Indication: HYPERTENSION
     Dosage: 20 MILLIGRAM
     Route: 048
  4. REVLIMID [Suspect]
     Indication: MULTIPLE MYELOMA
     Dosage: 10 MILLIGRAM
     Route: 048
     Dates: start: 20111125, end: 20111206
  5. ETODOLAC [Concomitant]
     Indication: PAIN
     Dosage: 400 MILLIGRAM
     Route: 048
     Dates: start: 20111116, end: 20111206
  6. ZANTAC [Concomitant]
     Dosage: 300 MILLIGRAM
     Route: 048
     Dates: start: 20111116, end: 20111206
  7. TRICHLORMETHIAZIDE [Concomitant]
     Indication: HYPERTENSION
     Dosage: 1 MILLIGRAM
     Route: 048
  8. MICARDIS [Concomitant]
     Indication: HYPERTENSION
     Dosage: 80 MILLIGRAM
     Route: 048
  9. LOXONIN [Concomitant]
     Indication: PAIN
     Dosage: 60 MILLIGRAM
     Route: 048
     Dates: start: 20111114, end: 20111206
  10. DEXAMETHASONE ACETATE [Suspect]
     Indication: MULTIPLE MYELOMA
     Dosage: 8 MILLIGRAM
     Route: 048
     Dates: start: 20111125, end: 20111206
  11. ZOLPIDEM [Concomitant]
     Dosage: 5 MILLIGRAM
     Route: 048
     Dates: start: 20111116, end: 20111206

REACTIONS (3)
  - RASH [None]
  - RENAL DISORDER [None]
  - HEPATIC FUNCTION ABNORMAL [None]
